FAERS Safety Report 11717422 (Version 2)
Quarter: 2015Q4

REPORT INFORMATION
  Report Type: Spontaneous
  Country: US (occurrence: US)
  Receive Date: 20151110
  Receipt Date: 20151118
  Transmission Date: 20160304
  Serious: No
  Sender: FDA-Public Use
  Company Number: US-AMGEN-USASL2015114657

PATIENT
  Age: 85 Year
  Sex: Female

DRUGS (1)
  1. ENBREL [Suspect]
     Active Substance: ETANERCEPT
     Indication: PSORIASIS
     Dosage: 50 MG, 2 TIMES/WK
     Route: 065
     Dates: start: 20150913

REACTIONS (6)
  - Inappropriate schedule of drug administration [Unknown]
  - Device issue [Unknown]
  - Erythema [Not Recovered/Not Resolved]
  - Rash [Unknown]
  - Skin warm [Unknown]
  - Rash papular [Unknown]

NARRATIVE: CASE EVENT DATE: 2015
